FAERS Safety Report 23638286 (Version 2)
Quarter: 2024Q4

REPORT INFORMATION
  Report Type: Spontaneous
  Country: US (occurrence: US)
  Receive Date: 20240315
  Receipt Date: 20241108
  Transmission Date: 20250115
  Serious: No
  Sender: INCYTE
  Company Number: US-INCYTE CORPORATION-2024IN001879

PATIENT

DRUGS (1)
  1. OPZELURA [Suspect]
     Active Substance: RUXOLITINIB PHOSPHATE
     Indication: Rash
     Dosage: UNK
     Route: 065

REACTIONS (4)
  - Scratch [Unknown]
  - Skin haemorrhage [Unknown]
  - Product physical issue [Unknown]
  - Off label use [Unknown]
